FAERS Safety Report 15349884 (Version 12)
Quarter: 2019Q2

REPORT INFORMATION
  Report Type: Report from Study
  Country: IN (occurrence: IN)
  Receive Date: 20180904
  Receipt Date: 20190621
  Transmission Date: 20190711
  Serious: Yes (Hospitalization)
  Sender: FDA-Public Use
  Company Number: PHHO2018IN009640

PATIENT
  Age: 35 Year
  Sex: Male
  Weight: 75 kg

DRUGS (8)
  1. OFATUMUMAB [Suspect]
     Active Substance: OFATUMUMAB
     Indication: RELAPSING MULTIPLE SCLEROSIS
     Dosage: 20 MG, QMO
     Route: 058
     Dates: start: 20171010, end: 20180816
  2. FRITOLEV [Concomitant]
     Indication: SEIZURE
     Dosage: 500 MG, BID
     Route: 048
     Dates: start: 201503
  3. PAN [Concomitant]
     Indication: ANTACID THERAPY
     Dosage: 40 MG, QD
     Route: 048
     Dates: start: 20180801
  4. CRANBERRY. [Concomitant]
     Active Substance: CRANBERRY
     Indication: PROPHYLAXIS URINARY TRACT INFECTION
     Dosage: 300 MG, QD
     Route: 048
     Dates: start: 201602
  5. LEVIPIL [Concomitant]
     Active Substance: LEVETIRACETAM
     Indication: SEIZURE
     Dosage: 500 MG, BID
     Route: 048
     Dates: start: 20180801
  6. SHELCAL [Concomitant]
     Active Substance: CALCIUM CARBONATE\CHOLECALCIFEROL
     Indication: MINERAL SUPPLEMENTATION
     Dosage: 500 MG, BID
     Route: 048
     Dates: start: 201602
  7. CALCIROL [Concomitant]
     Indication: VITAMIN SUPPLEMENTATION
     Dosage: 1 G, QMO
     Route: 048
     Dates: start: 201703
  8. OFATUMUMAB [Suspect]
     Active Substance: OFATUMUMAB
     Dosage: 20 MG, QMO
     Route: 058
     Dates: start: 20181113

REACTIONS (1)
  - Urosepsis [Recovered/Resolved]

NARRATIVE: CASE EVENT DATE: 20180909
